FAERS Safety Report 5097338-4 (Version None)
Quarter: 2006Q3

REPORT INFORMATION
  Report Type: 
  Country: None (occurrence: None)
  Receive Date: 20060906
  Receipt Date: 20060627
  Transmission Date: 20061208
  Serious: Yes (Other)
  Sender: FDA-Public Use
  Company Number: DE-GLAXOSMITHKLINE-D0050146A

PATIENT
  Age: 50 Year
  Sex: Female
  Weight: 58 kg

DRUGS (4)
  1. RETROVIR [Suspect]
     Route: 048
     Dates: start: 19950724
  2. BROMOCRIPTIN [Concomitant]
     Indication: MASTITIS
     Route: 065
  3. L-THYROXIN [Concomitant]
     Route: 065
  4. LIVIELLA [Concomitant]
     Route: 065

REACTIONS (3)
  - ILEUS [None]
  - SELECTIVE IGA IMMUNODEFICIENCY [None]
  - SYSTEMIC LUPUS ERYTHEMATOSUS [None]
